FAERS Safety Report 8784723 (Version 1)
Quarter: 2012Q4

REPORT INFORMATION
  Report Type: Spontaneous
  Country: US (occurrence: None)
  Receive Date: 20120831
  Receipt Date: 20120831
  Transmission Date: 20130627
  Serious: Yes (Hospitalization, Other)
  Sender: FDA-Public Use
  Company Number: 2012AP055074

PATIENT
  Age: 45 Year
  Sex: Male

DRUGS (9)
  1. LAMOTRIGINE [Suspect]
     Indication: FRONTAL LOBE EPILEPSY
  2. VALPROATE SODIUM [Suspect]
     Indication: FRONTAL LOBE EPILEPSY
  3. VALPROATE SODIUM [Suspect]
     Indication: FRONTAL LOBE EPILEPSY
  4. VALPROATE SODIUM [Suspect]
     Indication: FRONTAL LOBE EPILEPSY
  5. RISPERIDONE [Concomitant]
  6. VITAMIN B1 [Concomitant]
  7. VITAMIN D3 [Concomitant]
  8. TOPIRAMATE [Concomitant]
  9. LORAZEPAM [Concomitant]

REACTIONS (8)
  - Convulsion [None]
  - Toxicity to various agents [None]
  - Mental status changes [None]
  - Ataxia [None]
  - Dysarthria [None]
  - Aggression [None]
  - Hallucination, visual [None]
  - Slow response to stimuli [None]
